FAERS Safety Report 14185483 (Version 1)
Quarter: 2017Q4

REPORT INFORMATION
  Report Type: Report from Study
  Country: PA (occurrence: PA)
  Receive Date: 20171114
  Receipt Date: 20171114
  Transmission Date: 20180321
  Serious: Yes (Other)
  Sender: FDA-Public Use
  Company Number: PHHY2017PA165523

PATIENT
  Age: 62 Year
  Sex: Male

DRUGS (1)
  1. EXFORGE HCT [Suspect]
     Active Substance: AMLODIPINE BESYLATE\HYDROCHLOROTHIAZIDE\VALSARTAN
     Indication: PRODUCT USED FOR UNKNOWN INDICATION
     Dosage: 1 DF (10 MG AMLODIPINE/25 MG HYDROCHLOROTHIAZIDE/160MG VALSARTAN), UNK
     Route: 065

REACTIONS (2)
  - Hypertensive crisis [Unknown]
  - Weight increased [Unknown]
